FAERS Safety Report 23246108 (Version 2)
Quarter: 2023Q4

REPORT INFORMATION
  Report Type: Report from Study
  Country: ZA (occurrence: ZA)
  Receive Date: 20231130
  Receipt Date: 20231207
  Transmission Date: 20240110
  Serious: Yes (Other)
  Sender: FDA-Public Use
  Company Number: ZA-002147023-NVSC2023ZA252817

PATIENT
  Age: 59 Year
  Sex: Male

DRUGS (1)
  1. OFATUMUMAB [Suspect]
     Active Substance: OFATUMUMAB
     Indication: Relapsing-remitting multiple sclerosis
     Dosage: 20 MG, QW (PATIENT HAS JUST INITIATED BONSPRI LOADING DOSE)
     Route: 058
     Dates: start: 20231124

REACTIONS (6)
  - Urinary incontinence [Unknown]
  - Fall [Unknown]
  - Scratch [Unknown]
  - Fatigue [Unknown]
  - Hypoaesthesia oral [Unknown]
  - Headache [Not Recovered/Not Resolved]

NARRATIVE: CASE EVENT DATE: 20231125
